FAERS Safety Report 4801933-4 (Version None)
Quarter: 2005Q4

REPORT INFORMATION
  Report Type: 
  Country: None (occurrence: None)
  Receive Date: 20051011
  Receipt Date: 20050907
  Transmission Date: 20060501
  Serious: Yes (Hospitalization)
  Sender: FDA-Public Use
  Company Number: 2005134303

PATIENT
  Age: 73 Year
  Sex: Male

DRUGS (9)
  1. ADRIAMYCIN PFS [Suspect]
     Indication: MULTIPLE MYELOMA
     Dosage: 20 MG (DAILY), INTRAVENOUS
     Route: 042
     Dates: start: 20040504, end: 20040507
  2. THALOMID [Suspect]
     Indication: MULTIPLE MYELOMA
     Dosage: 200 MG (DAILY), ORAL
     Route: 048
     Dates: start: 20040504, end: 20040507
  3. BORTEZOMIB (BORTEZOMIB) [Suspect]
     Indication: MULTIPLE MYELOMA
     Dosage: 2 MG (DAILY), INTRAVENOUS
     Route: 042
     Dates: start: 20040504, end: 20040504
  4. BORTEZOMIB (BORTEZOMIB) [Suspect]
     Indication: MULTIPLE MYELOMA
     Dosage: 2 MG (DAILY), INTRAVENOUS
     Route: 042
     Dates: start: 20040508, end: 20040508
  5. BORTEZOMIB (BORTEZOMIB) [Suspect]
     Indication: MULTIPLE MYELOMA
     Dosage: 2 MG (DAILY), INTRAVENOUS
     Route: 042
     Dates: start: 20040511, end: 20040511
  6. DEXAMETHASONE [Suspect]
     Indication: MULTIPLE MYELOMA
     Dosage: 40 MG (DAILY), ORAL
     Route: 048
     Dates: start: 20040504, end: 20040507
  7. CISPLATIN [Suspect]
     Indication: MULTIPLE MYELOMA
     Dosage: 20 MG (DAILY), INTRAVENOUS
     Route: 042
     Dates: start: 20040504, end: 20040507
  8. CYCLOPHOSPHAMIDE [Suspect]
     Indication: MULTIPLE MYELOMA
     Dosage: 800 MG (DAILY), INTRAVENOUS
     Route: 042
     Dates: start: 20040504, end: 20040507
  9. ETOPOSIDE [Suspect]
     Indication: MULTIPLE MYELOMA
     Dosage: 80 MG (DAILY), INTRAVENOUS
     Route: 042
     Dates: start: 20040504, end: 20040507

REACTIONS (1)
  - SYNCOPE [None]
